FAERS Safety Report 11081940 (Version 2)
Quarter: 2018Q1

REPORT INFORMATION
  Report Type: Spontaneous
  Country: FR (occurrence: FR)
  Receive Date: 20150501
  Receipt Date: 20180102
  Transmission Date: 20180508
  Serious: Yes (Other)
  Sender: FDA-Public Use
  Company Number: FR-MYLANLABS-2015M1014472

PATIENT
  Age: 45 Year
  Sex: Female
  Weight: 100 kg

DRUGS (5)
  1. VALPROIC ACID. [Suspect]
     Active Substance: VALPROIC ACID
     Indication: BIPOLAR DISORDER
     Dosage: 500 MG, BID
     Route: 065
  2. MIANSERIN [Concomitant]
     Active Substance: MIANSERIN
     Indication: BIPOLAR DISORDER
     Dosage: 40 MG, QD
     Route: 065
  3. LORAZEPAM. [Concomitant]
     Active Substance: LORAZEPAM
     Indication: BIPOLAR DISORDER
     Dosage: 5 MG/DAY IN THREE DOSES
     Route: 065
  4. LOXAPAC                            /00401801/ [Interacting]
     Active Substance: LOXAPINE
     Indication: BIPOLAR DISORDER
     Dosage: 300MG
     Route: 042
  5. LITHIUM. [Concomitant]
     Active Substance: LITHIUM
     Indication: BIPOLAR DISORDER
     Dosage: 800 MG, QD
     Route: 065

REACTIONS (6)
  - Catatonia [Recovered/Resolved]
  - Drug interaction [Unknown]
  - Extrapyramidal disorder [Unknown]
  - Musculoskeletal stiffness [Unknown]
  - Rhabdomyolysis [Unknown]
  - Neuroleptic malignant syndrome [Recovered/Resolved]
